FAERS Safety Report 6936720-4 (Version None)
Quarter: 2010Q3

REPORT INFORMATION
  Report Type: 
  Country: None (occurrence: None)
  Receive Date: 20100818
  Receipt Date: 20100811
  Transmission Date: 20110219
  Serious: Yes (Hospitalization)
  Sender: FDA-Public Use
  Company Number: USA/USA/10/0015180

PATIENT
  Age: 80 Year
  Sex: Male
  Weight: 94.34 kg

DRUGS (8)
  1. GLIMEPIRIDE [Suspect]
     Indication: TYPE 2 DIABETES MELLITUS
     Dosage: 4 MG, 1 IN 1 D, PER ORAL
     Route: 048
     Dates: start: 20100429, end: 20100714
  2. STUDY DRUG [Suspect]
     Indication: TYPE 2 DIABETES MELLITUS
  3. LOTENSIN [Concomitant]
  4. NORVASC [Concomitant]
  5. INDAPAMIDE [Concomitant]
  6. ZOCOR [Concomitant]
  7. ASPIRIN [Concomitant]
  8. POTASSIUM CHLORIDE [Concomitant]

REACTIONS (1)
  - BLADDER NEOPLASM [None]
